FAERS Safety Report 9606453 (Version 2)
Quarter: 2013Q4

REPORT INFORMATION
  Report Type: Spontaneous
  Country: US (occurrence: US)
  Receive Date: 20131008
  Receipt Date: 20131008
  Transmission Date: 20140711
  Serious: No
  Sender: FDA-Public Use
  Company Number: US-AMGEN-USASP2013043929

PATIENT
  Age: 73 Year
  Sex: Male
  Weight: 73.92 kg

DRUGS (5)
  1. PROLIA [Suspect]
     Indication: PROSTATE CANCER
     Dosage: UNK UNK, Q6MO
     Route: 058
     Dates: start: 20111230, end: 20130128
  2. LUPRON [Concomitant]
     Dosage: UNK UNK, Q6MO
  3. CALCIUM [Concomitant]
     Dosage: UNK UNK, Q6MO
  4. MAGNESIUM [Concomitant]
     Dosage: UNK UNK, Q6MO
  5. PROSTEON [Concomitant]
     Indication: PROSTATE CANCER
     Dosage: UNK UNK, QD, 4 TABLETS
     Route: 048
     Dates: start: 20111212

REACTIONS (1)
  - Eczema [Recovered/Resolved]
